FAERS Safety Report 20860856 (Version 1)
Quarter: 2022Q2

REPORT INFORMATION
  Report Type: Spontaneous
  Country: US (occurrence: US)
  Receive Date: 20220523
  Receipt Date: 20220523
  Transmission Date: 20220721
  Serious: Yes (Other)
  Sender: FDA-Public Use
  Company Number: US-drreddys-LIT/USA/22/0150202

PATIENT
  Age: 64 Year
  Sex: Male

DRUGS (9)
  1. DEXAMETHASONE SODIUM PHOSPHATE [Suspect]
     Active Substance: DEXAMETHASONE SODIUM PHOSPHATE
     Indication: COVID-19 pneumonia
  2. DOBUTAMINE HYDROCHLORIDE [Suspect]
     Active Substance: DOBUTAMINE HYDROCHLORIDE
     Indication: Haemodynamic rebound
  3. DIPYRIDAMOLE [Suspect]
     Active Substance: DIPYRIDAMOLE
     Indication: Thrombosis
  4. BIVALIRUDIN [Suspect]
     Active Substance: BIVALIRUDIN
     Indication: Thrombosis
  5. REMDESIVIR [Suspect]
     Active Substance: REMDESIVIR
     Indication: COVID-19 pneumonia
  6. WARFARIN [Suspect]
     Active Substance: WARFARIN
     Indication: COVID-19 pneumonia
  7. VITAMIN K [Suspect]
     Active Substance: PHYTONADIONE
     Indication: International normalised ratio
  8. HEPARIN [Suspect]
     Active Substance: HEPARIN SODIUM
     Indication: International normalised ratio
     Dosage: HIGH-INTENSITY HEPARIN DRIP
  9. ASPIRIN [Suspect]
     Active Substance: ASPIRIN
     Indication: Thrombosis
     Dosage: DOSE WAS ESCALATED TO 325MG

REACTIONS (2)
  - Drug ineffective [Unknown]
  - Off label use [Unknown]
